FAERS Safety Report 15868852 (Version 1)
Quarter: 2019Q1

REPORT INFORMATION
  Report Type: Spontaneous
  Country: US (occurrence: US)
  Receive Date: 20190125
  Receipt Date: 20190125
  Transmission Date: 20190417
  Serious: Yes (Other)
  Sender: FDA-Public Use
  Company Number: None

PATIENT
  Age: 16 Year
  Sex: Male
  Weight: 84.6 kg

DRUGS (1)
  1. METHYLPHENIDATE ER [Suspect]
     Active Substance: METHYLPHENIDATE
     Indication: ATTENTION DEFICIT/HYPERACTIVITY DISORDER
     Route: 048
     Dates: start: 20181216, end: 20190116

REACTIONS (5)
  - Drug effect incomplete [None]
  - Emotional disorder [None]
  - Product complaint [None]
  - Educational problem [None]
  - Therapeutic response changed [None]

NARRATIVE: CASE EVENT DATE: 20190116
